FAERS Safety Report 24913008 (Version 1)
Quarter: 2025Q1

REPORT INFORMATION
  Report Type: Spontaneous
  Country: US (occurrence: US)
  Receive Date: 20250201
  Receipt Date: 20250201
  Transmission Date: 20250408
  Serious: No
  Sender: ALEXION PHARMACEUTICALS
  Company Number: US-AstraZeneca-CH-00790083AP

PATIENT

DRUGS (1)
  1. SYMBICORT AEROSPHERE [Suspect]
     Active Substance: BUDESONIDE\FORMOTEROL FUMARATE
     Indication: Product used for unknown indication
     Route: 065

REACTIONS (4)
  - Dysgeusia [Unknown]
  - Product dose omission issue [Unknown]
  - Device malfunction [Unknown]
  - Drug dose omission by device [Unknown]
